FAERS Safety Report 9412298 (Version 1)
Quarter: 2013Q3

REPORT INFORMATION
  Report Type: Spontaneous
  Country: CA (occurrence: CA)
  Receive Date: 20130722
  Receipt Date: 20130722
  Transmission Date: 20140515
  Serious: Yes (Other)
  Sender: FDA-Public Use
  Company Number: CA-PFIZER INC-2013208824

PATIENT
  Age: 53 Year
  Sex: Female

DRUGS (4)
  1. CELEBREX [Suspect]
     Dosage: 200 MG, 1 TO 2 PER DAY
     Dates: start: 20040404
  2. CELEBREX [Suspect]
     Dosage: 200 MG, 1X/DAY
     Dates: start: 20050620
  3. CELEBREX [Suspect]
     Dosage: 200 MG, 1 TO 2 PER DAY
     Dates: start: 20060924
  4. CELEBREX [Suspect]
     Dosage: 200 MG, 1X/DAY
     Dates: start: 20070821

REACTIONS (2)
  - Skin reaction [Not Recovered/Not Resolved]
  - Eczema [Not Recovered/Not Resolved]
